FAERS Safety Report 25471759 (Version 1)
Quarter: 2025Q2

REPORT INFORMATION
  Report Type: Spontaneous
  Country: US (occurrence: US)
  Receive Date: 20250624
  Receipt Date: 20250624
  Transmission Date: 20250716
  Serious: No
  Sender: TOLMAR
  Company Number: US-Tolmar-TLM-2025-02362

PATIENT
  Age: 11 Year
  Sex: Female

DRUGS (2)
  1. FENSOLVI [Suspect]
     Active Substance: LEUPROLIDE ACETATE
     Indication: Precocious puberty
     Route: 065
  2. DEVICE [Suspect]
     Active Substance: DEVICE
     Indication: Precocious puberty

REACTIONS (6)
  - Condition aggravated [Unknown]
  - Blood luteinising hormone abnormal [Unknown]
  - Breast disorder [Unknown]
  - Emotional disorder [Unknown]
  - Off label use [Unknown]
  - Drug ineffective [Unknown]
